FAERS Safety Report 6364400-5 (Version None)
Quarter: 2009Q3

REPORT INFORMATION
  Report Type: 
  Country: None (occurrence: None)
  Receive Date: 20090919
  Receipt Date: 20090722
  Transmission Date: 20100115
  Serious: No
  Sender: FDA-Public Use
  Company Number: US-ABBOTT-09P-163-0587276-00

PATIENT
  Sex: Male
  Weight: 80.812 kg

DRUGS (6)
  1. HUMIRA [Suspect]
     Indication: CROHN'S DISEASE
     Route: 058
     Dates: start: 20080601, end: 20090501
  2. HUMIRA [Suspect]
     Route: 058
     Dates: start: 20090723
  3. ASACOL [Concomitant]
     Indication: CROHN'S DISEASE
     Dosage: 1600MG TID
     Route: 048
  4. ZYRTEC [Concomitant]
     Indication: SEASONAL ALLERGY
     Route: 048
  5. SINGULAIR [Concomitant]
     Indication: SEASONAL ALLERGY
  6. ZANTAC [Concomitant]
     Indication: GASTROOESOPHAGEAL REFLUX DISEASE
     Route: 048
     Dates: start: 20080601

REACTIONS (4)
  - CROHN'S DISEASE [None]
  - DRUG DOSE OMISSION [None]
  - DRUG INEFFECTIVE [None]
  - HYPOPHAGIA [None]
